FAERS Safety Report 17064234 (Version 1)
Quarter: 2019Q4

REPORT INFORMATION
  Report Type: Spontaneous
  Country: US (occurrence: US)
  Receive Date: 20191023
  Receipt Date: 20191023
  Transmission Date: 20200122
  Serious: Yes (Other)
  Sender: FDA-Public Use
  Company Number: None

PATIENT
  Age: 78 Year
  Sex: Male
  Weight: 71.21 kg

DRUGS (13)
  1. BOSTON SCIENTIFIC PACEMAKER/DEFIBRILLATOR [Concomitant]
  2. OMEG [Concomitant]
  3. BIOTIN [Concomitant]
     Active Substance: BIOTIN
  4. CRESTOR [Concomitant]
     Active Substance: ROSUVASTATIN CALCIUM
  5. CALCIUM [Concomitant]
     Active Substance: CALCIUM
  6. ZETIA [Concomitant]
     Active Substance: EZETIMIBE
  7. DHA [Concomitant]
     Active Substance: DIETARY SUPPLEMENT
  8. K-2 [Concomitant]
  9. MAGNESIUM [Concomitant]
     Active Substance: MAGNESIUM
  10. ASPIRIN. [Concomitant]
     Active Substance: ASPIRIN
  11. TESTOSTERONE GEL 1.62% [Suspect]
     Active Substance: TESTOSTERONE
     Indication: BLOOD TESTOSTERONE DECREASED
     Dosage: ?          QUANTITY:1.62 % PERCENT;?
     Route: 058
     Dates: start: 20190910, end: 20190920
  12. CITRUS BERGAMOT [Concomitant]
  13. PREVACID [Concomitant]
     Active Substance: LANSOPRAZOLE

REACTIONS (5)
  - Product substitution issue [None]
  - Libido decreased [None]
  - Drug ineffective [None]
  - Organic erectile dysfunction [None]
  - Product quality issue [None]

NARRATIVE: CASE EVENT DATE: 20190920
